FAERS Safety Report 5210602-0 (Version None)
Quarter: 2007Q1

REPORT INFORMATION
  Report Type: 
  Country: None (occurrence: None)
  Receive Date: 20070117
  Receipt Date: 20070111
  Transmission Date: 20070707
  Serious: Yes (Hospitalization)
  Sender: FDA-Public Use
  Company Number: FR-MERCK-0701FRA00010

PATIENT
  Age: 44 Year
  Sex: Male

DRUGS (6)
  1. SINGULAIR [Suspect]
     Indication: ASTHMA
     Route: 048
     Dates: start: 20040101
  2. VALPROATE SODIUM [Suspect]
     Indication: EPILEPSY
     Route: 048
     Dates: start: 19960101
  3. CARBAMAZEPINE [Suspect]
     Indication: EPILEPSY
     Route: 048
     Dates: start: 19960101
  4. CLOBAZAM [Suspect]
     Route: 048
  5. CANDESARTAN [Suspect]
     Indication: HYPERTENSION
     Route: 048
  6. DESLORATIDINE [Suspect]
     Indication: RHINITIS
     Route: 048
     Dates: start: 20061117, end: 20061123

REACTIONS (14)
  - ALANINE AMINOTRANSFERASE INCREASED [None]
  - ASPARTATE AMINOTRANSFERASE INCREASED [None]
  - BLOOD CHOLINESTERASE INCREASED [None]
  - BRADYCARDIA [None]
  - CHOLINERGIC SYNDROME [None]
  - DIZZINESS [None]
  - GAMMA-GLUTAMYLTRANSFERASE INCREASED [None]
  - HEADACHE [None]
  - HYPOTHERMIA [None]
  - MYOSITIS [None]
  - PHOTOPHOBIA [None]
  - SALIVARY HYPERSECRETION [None]
  - TRANSAMINASES INCREASED [None]
  - VOMITING [None]
